FAERS Safety Report 8457635 (Version 3)
Quarter: 2013Q1

REPORT INFORMATION
  Report Type: Spontaneous
  Country: AU (occurrence: AU)
  Receive Date: 20120314
  Receipt Date: 20130213
  Transmission Date: 20140127
  Serious: Yes (Other)
  Sender: FDA-Public Use
  Company Number: AU-UCBSA-052826

PATIENT
  Age: 61 Year
  Sex: Female

DRUGS (5)
  1. CIMZIA [Suspect]
     Indication: RHEUMATOID ARTHRITIS
     Route: 058
     Dates: start: 20120208, end: 20120305
  2. METHOTREXATE [Suspect]
     Indication: RHEUMATOID ARTHRITIS
     Route: 048
  3. PANADOL OSTEO [Suspect]
     Indication: ARTHRALGIA
     Route: 048
  4. CORTISONE [Suspect]
     Indication: RHEUMATOID ARTHRITIS
     Route: 048
  5. FOLIC ACID [Suspect]
     Indication: VITAMIN SUPPLEMENTATION

REACTIONS (3)
  - Osteomyelitis [Unknown]
  - Jaw fracture [Unknown]
  - Nasopharyngitis [Unknown]
